FAERS Safety Report 20677737 (Version 2)
Quarter: 2022Q2

REPORT INFORMATION
  Report Type: Spontaneous
  Country: ES (occurrence: ES)
  Receive Date: 20220406
  Receipt Date: 20220617
  Transmission Date: 20220721
  Serious: Yes (Life-Threatening, Hospitalization, Other)
  Sender: FDA-Public Use
  Company Number: ES-NOVARTISPH-NVSC2022ES076721

PATIENT
  Age: 80 Year
  Sex: Female
  Weight: 64 kg

DRUGS (1)
  1. HYDROCHLOROTHIAZIDE\LOSARTAN [Suspect]
     Active Substance: HYDROCHLOROTHIAZIDE\LOSARTAN
     Indication: Hypertension
     Dosage: UNK, QD
     Route: 048
     Dates: end: 202111

REACTIONS (14)
  - Pulmonary oedema [Unknown]
  - Toxicity to various agents [Recovered/Resolved with Sequelae]
  - Arrhythmia [Not Recovered/Not Resolved]
  - Dyspnoea [Unknown]
  - Tachycardia [Not Recovered/Not Resolved]
  - Rash macular [Recovering/Resolving]
  - Fluid retention [Unknown]
  - Abdominal distension [Unknown]
  - Blister [Recovering/Resolving]
  - Pemphigoid [Not Recovered/Not Resolved]
  - Periorbital swelling [Unknown]
  - Cardiac failure [Unknown]
  - Fatigue [Unknown]
  - Atrial fibrillation [Not Recovered/Not Resolved]

NARRATIVE: CASE EVENT DATE: 20210801
